FAERS Safety Report 19580907 (Version 1)
Quarter: 2021Q3

REPORT INFORMATION
  Report Type: Spontaneous
  Country: US (occurrence: US)
  Receive Date: 20210719
  Receipt Date: 20210719
  Transmission Date: 20211014
  Serious: Yes (Other)
  Sender: FDA-Public Use
  Company Number: None

PATIENT
  Age: 69 Year
  Sex: Female
  Weight: 51.75 kg

DRUGS (6)
  1. GARLIC. [Concomitant]
     Active Substance: GARLIC
  2. MULTI VITAMIN [Concomitant]
     Active Substance: VITAMINS
  3. ALENDRONATE SODIUM. [Suspect]
     Active Substance: ALENDRONATE SODIUM
     Indication: BONE DENSITY DECREASED
     Dosage: ?          QUANTITY:12 TABLET(S);OTHER FREQUENCY:EVERY 7 DAYS;?
     Route: 048
     Dates: end: 20210714
  4. BIOTIN [Concomitant]
     Active Substance: BIOTIN
  5. CALCIUM + D3 [Concomitant]
     Active Substance: CALCIUM\CHOLECALCIFEROL
  6. SALMON OIL [Concomitant]
     Active Substance: FISH OIL

REACTIONS (3)
  - Asthenia [None]
  - Hypoaesthesia [None]
  - Dizziness [None]

NARRATIVE: CASE EVENT DATE: 20210719
